FAERS Safety Report 21132043 (Version 2)
Quarter: 2022Q3

REPORT INFORMATION
  Report Type: Spontaneous
  Country: US (occurrence: US)
  Receive Date: 20220726
  Receipt Date: 20220815
  Transmission Date: 20221027
  Serious: Yes (Other)
  Sender: FDA-Public Use
  Company Number: US-BAYER-2022A100100

PATIENT
  Age: 22 Year
  Sex: Male

DRUGS (1)
  1. KOGENATE FS [Suspect]
     Active Substance: ANTIHEMOPHILIC FACTOR, HUMAN RECOMBINANT
     Dosage: 22000 IU

REACTIONS (3)
  - Haemarthrosis [None]
  - Joint injury [None]
  - Fall [None]

NARRATIVE: CASE EVENT DATE: 20220715
